FAERS Safety Report 11720741 (Version 4)
Quarter: 2016Q4

REPORT INFORMATION
  Report Type: Spontaneous
  Country: US (occurrence: US)
  Receive Date: 20151110
  Receipt Date: 20161208
  Transmission Date: 20170206
  Serious: No
  Sender: FDA-Public Use
  Company Number: US-PFIZER INC-2015366167

PATIENT
  Age: 68 Year
  Sex: Female

DRUGS (35)
  1. LYRICA [Suspect]
     Active Substance: PREGABALIN
     Indication: NEUROPATHY PERIPHERAL
  2. ASPIRIN. [Concomitant]
     Active Substance: ASPIRIN
     Dosage: 81 MG, 1X/DAY
  3. LORAZEPAM. [Concomitant]
     Active Substance: LORAZEPAM
     Dosage: 0.5 MG, 2X/DAY (1 AM + 1 PM)
  4. VOLTAREN [Concomitant]
     Active Substance: DICLOFENAC SODIUM
     Dosage: UNK, AS NEEDED (APPLY 4 XDAILY AS NEEDED)
     Route: 061
  5. SPIRIVA [Concomitant]
     Active Substance: TIOTROPIUM BROMIDE MONOHYDRATE
     Dosage: 1 DF, 1X/DAY  (1 CAPSULE, BEDTIME)
  6. ONDANSETRON [Concomitant]
     Active Substance: ONDANSETRON
     Dosage: 4 MG, UNK
     Route: 060
  7. CYMBALTA [Concomitant]
     Active Substance: DULOXETINE HYDROCHLORIDE
     Dosage: UNK
  8. PREDNISONE. [Concomitant]
     Active Substance: PREDNISONE
     Dosage: 5 MG, DAILY
  9. DILAUDID [Concomitant]
     Active Substance: HYDROMORPHONE HYDROCHLORIDE
     Dosage: 4 MG, AS NEEDED (EVERY 4 - 6 HRS AS NEEDED)
  10. VITAMIN B-6 [Concomitant]
     Active Substance: PYRIDOXINE
     Dosage: 100 MG, DAILY
  11. OMEPRAZOLE. [Concomitant]
     Active Substance: OMEPRAZOLE
     Dosage: 40 MG, 1X/DAY (1 X DAY BEFORE A MEAL)
  12. CENTRUM SILVER [Concomitant]
     Active Substance: MINERALS\VITAMINS
     Dosage: UNK, 1X/DAY
  13. LYRICA [Suspect]
     Active Substance: PREGABALIN
     Indication: FIBROMYALGIA
     Dosage: 100 MG, 3X/DAY
     Route: 048
     Dates: end: 201510
  14. TOPIRAMATE. [Concomitant]
     Active Substance: TOPIRAMATE
     Dosage: 200 MG, 2X/DAY (200MG AM + 200MG PM)
  15. ASTEPRO [Concomitant]
     Active Substance: AZELASTINE HYDROCHLORIDE
     Dosage: 0.15 %, 2X/DAY (2 SPRAYS,2 PER DAY AM + PM )
  16. PROBIOTIC [Concomitant]
     Active Substance: PROBIOTICS NOS
     Dosage: UNK, 1X/DAY
  17. CALCIUM [Concomitant]
     Active Substance: CALCIUM
     Indication: ARTHROPATHY
  18. VITAMIN C [Concomitant]
     Active Substance: ASCORBIC ACID
     Dosage: 500 MG, 2X/DAY (500 MG USP)
  19. TOPAMAX [Concomitant]
     Active Substance: TOPIRAMATE
     Dosage: UNK
  20. PRAMIPEXOLE. [Concomitant]
     Active Substance: PRAMIPEXOLE
     Indication: RESTLESS LEGS SYNDROME
     Dosage: 1 MG, 2X/DAY (1 MG AT DINNER 1 AT BED)
  21. TORSEMIDE. [Concomitant]
     Active Substance: TORSEMIDE
     Dosage: 20 MG, AS NEEDED (1 -3 PER DAY AS NEEDED)
  22. AMITRIPTYLINE [Concomitant]
     Active Substance: AMITRIPTYLINE
     Dosage: 25 MG, 2X/DAY (2 TAB AT BEDTIME)
  23. ALBUTEROL (PRO-AIR) [Concomitant]
     Dosage: 2 DF, AS NEEDED (2 PUFFS,EVERY 4 HRS IF NEEDED )
  24. CALCIUM [Concomitant]
     Active Substance: CALCIUM
     Indication: BONE DISORDER
     Dosage: 500 MG, 2X/DAY
  25. POTASSIUM GL [Concomitant]
     Dosage: 20 MEQ, 1X/DAY (20 MEQ ER)
  26. VITAMIN D [Concomitant]
     Active Substance: CHOLECALCIFEROL
     Dosage: 2000 IU, DAILY (2000 UNITS)
  27. COENZYME Q10 [Concomitant]
     Active Substance: UBIDECARENONE
     Dosage: 200 MG, DAILY
  28. LYRICA [Suspect]
     Active Substance: PREGABALIN
     Indication: RESTLESS LEGS SYNDROME
  29. DULOXETINE DR [Concomitant]
     Active Substance: DULOXETINE
     Dosage: 60 MG, 2X/DAY  (1 AM + 1 BEDTIME)
  30. SPIRONOLACTONE. [Concomitant]
     Active Substance: SPIRONOLACTONE
     Dosage: 25 MG, DAILY
  31. VITAMIN B12 [Concomitant]
     Active Substance: CYANOCOBALAMIN
     Dosage: 2000 UG, DAILY
  32. BENZONATATE. [Concomitant]
     Active Substance: BENZONATATE
     Dosage: 200 MG, UNK
  33. TIZANIDINE. [Concomitant]
     Active Substance: TIZANIDINE
     Dosage: 50 MG, UNK
  34. LOSARTAN. [Concomitant]
     Active Substance: LOSARTAN
     Dosage: 50 MG, 1X/DAY
  35. FLONASE NASAL [Concomitant]
     Dosage: 2 DF, 1X/DAY (2 SPRAYS,1 X PER DAY PM )

REACTIONS (6)
  - Peripheral swelling [Not Recovered/Not Resolved]
  - Restlessness [Unknown]
  - Pain [Not Recovered/Not Resolved]
  - Swelling [Not Recovered/Not Resolved]
  - Osteoarthritis [Unknown]
  - Condition aggravated [Not Recovered/Not Resolved]
